FAERS Safety Report 9591274 (Version 1)
Quarter: 2013Q4

REPORT INFORMATION
  Report Type: Spontaneous
  Country: US (occurrence: US)
  Receive Date: 20131003
  Receipt Date: 20131003
  Transmission Date: 20140711
  Serious: No
  Sender: FDA-Public Use
  Company Number: US-AMGEN-USASP2012081222

PATIENT
  Age: 58 Year
  Sex: Female
  Weight: 88.44 kg

DRUGS (7)
  1. ENBREL [Suspect]
     Indication: PRODUCT USED FOR UNKNOWN INDICATION
     Dosage: 50 MG, 2 TIMES/WK
     Route: 058
  2. VITAMIN D                          /00107901/ [Concomitant]
     Dosage: 1000 UNIT, UNK
  3. VECTICAL [Concomitant]
     Dosage: 3 MCG/GM UNK
  4. VISTARIL                           /00058402/ [Concomitant]
     Dosage: 25 MG, UNK
  5. ISONIAZIDE [Concomitant]
     Dosage: 100 MG, UNK
  6. TRAMADOL HCL [Concomitant]
     Dosage: 150 MG, ER UNK
  7. NEXIUM                             /01479302/ [Concomitant]
     Dosage: 20 MG, UNK

REACTIONS (4)
  - Pain in extremity [Unknown]
  - Arthralgia [Unknown]
  - Abdominal discomfort [Unknown]
  - Menstrual disorder [Unknown]
